FAERS Safety Report 6453975-3 (Version None)
Quarter: 2009Q4

REPORT INFORMATION
  Report Type: 
  Country: None (occurrence: None)
  Receive Date: 20091124
  Receipt Date: 20091110
  Transmission Date: 20100525
  Serious: Yes (Other)
  Sender: FDA-Public Use
  Company Number: GB-MYLANLABS-2009S1019496

PATIENT
  Age: 82 Year
  Sex: Female

DRUGS (1)
  1. ALENDRONIC ACID [Suspect]
     Indication: SPINAL FRACTURE

REACTIONS (2)
  - FEMUR FRACTURE [None]
  - FIBULA FRACTURE [None]
